FAERS Safety Report 8439277-4 (Version None)
Quarter: 2012Q2

REPORT INFORMATION
  Report Type: 
  Country: None (occurrence: None)
  Receive Date: 20120615
  Receipt Date: 20120607
  Transmission Date: 20120825
  Serious: Yes (Other)
  Sender: FDA-Public Use
  Company Number: CN-ASTELLAS-2012JP005248

PATIENT
  Sex: Female

DRUGS (1)
  1. SOLIFENACIN SUCCINATE [Suspect]
     Indication: POLLAKIURIA
     Dosage: 5 MG, UNKNOWN/D
     Route: 048
     Dates: start: 20120605

REACTIONS (3)
  - ABDOMINAL DISCOMFORT [None]
  - DYSPNOEA [None]
  - THROAT TIGHTNESS [None]
